FAERS Safety Report 23831335 (Version 1)
Quarter: 2024Q2

REPORT INFORMATION
  Report Type: Spontaneous
  Country: US (occurrence: US)
  Receive Date: 20240508
  Receipt Date: 20240508
  Transmission Date: 20240716
  Serious: No
  Sender: FDA-Public Use
  Company Number: US-PFIZER INC-202400102980

PATIENT
  Age: 64 Year
  Sex: Female

DRUGS (8)
  1. XELJANZ XR [Suspect]
     Active Substance: TOFACITINIB CITRATE
     Dosage: 11 MG, 1X/DAY
     Route: 048
     Dates: start: 202303
  2. AIRBORNE [Concomitant]
     Active Substance: HERBALS\MINERALS\VITAMINS
  3. CALCIUM [Concomitant]
     Active Substance: CALCIUM
  4. FISH OIL [Concomitant]
     Active Substance: FISH OIL
  5. GABAPENTIN [Concomitant]
     Active Substance: GABAPENTIN
  6. GLUCOSAMINE + CHONDORITIN [Concomitant]
     Dosage: HAIR, SKIN AND NAILS
  7. VITAMIN C VALENTIS [Concomitant]
  8. VITAMIN D3 [Concomitant]
     Active Substance: CHOLECALCIFEROL

REACTIONS (2)
  - Pain [Unknown]
  - Loss of personal independence in daily activities [Unknown]
